FAERS Safety Report 18644514 (Version 2)
Quarter: 2020Q4

REPORT INFORMATION
  Report Type: Spontaneous
  Country: US (occurrence: US)
  Receive Date: 20201221
  Receipt Date: 20201223
  Transmission Date: 20210114
  Serious: Yes (Life-Threatening, Other)
  Sender: FDA-Public Use
  Company Number: US-PFIZER INC-2020500262

PATIENT
  Sex: Female

DRUGS (5)
  1. VERAPAMIL HCL [Suspect]
     Active Substance: VERAPAMIL HYDROCHLORIDE
     Indication: HYPERTENSION
     Dosage: UNK
  2. ASPIRINE [Concomitant]
     Active Substance: ASPIRIN
     Dosage: UNK
  3. CARVEDILOL. [Concomitant]
     Active Substance: CARVEDILOL
     Dosage: UNK
  4. ATROPINE. [Concomitant]
     Active Substance: ATROPINE
     Indication: HYPOTENSION
     Dosage: 0.5 MG
  5. DOPAMINE [Concomitant]
     Active Substance: DOPAMINE HYDROCHLORIDE
     Indication: HYPOTENSION
     Dosage: 2 UG/KG (2 MCG/KG/MIN)
     Route: 041

REACTIONS (1)
  - BRASH syndrome [Recovered/Resolved]
